FAERS Safety Report 17088436 (Version 4)
Quarter: 2021Q1

REPORT INFORMATION
  Report Type: Report from Study
  Country: JP (occurrence: JP)
  Receive Date: 20191128
  Receipt Date: 20210218
  Transmission Date: 20210419
  Serious: Yes (Other)
  Sender: FDA-Public Use
  Company Number: NVSJ2019JP004363

PATIENT
  Age: 43 Year
  Sex: Female

DRUGS (15)
  1. COLCHICINE. [Concomitant]
     Active Substance: COLCHICINE
     Dosage: 2.5 MG
     Route: 065
     Dates: start: 20170127, end: 20180820
  2. NAUZELIN [Concomitant]
     Active Substance: DOMPERIDONE
     Indication: PRODUCT USED FOR UNKNOWN INDICATION
     Dosage: 10 MG
     Route: 048
  3. TIZANIDINE. [Concomitant]
     Active Substance: TIZANIDINE
     Indication: PRODUCT USED FOR UNKNOWN INDICATION
     Dosage: 1 MG
     Route: 048
  4. ILARIS [Suspect]
     Active Substance: CANAKINUMAB
     Dosage: 150 MG
     Route: 058
     Dates: start: 20190722
  5. ILARIS [Suspect]
     Active Substance: CANAKINUMAB
     Dosage: 300 MG
     Route: 058
     Dates: start: 20190920
  6. ILARIS [Suspect]
     Active Substance: CANAKINUMAB
     Dosage: 300 MG
     Route: 058
     Dates: start: 20191209
  7. COLCHICINE. [Concomitant]
     Active Substance: COLCHICINE
     Dosage: 1.5 MG
     Route: 065
     Dates: start: 20180821
  8. ALLELOCK [Concomitant]
     Active Substance: OLOPATADINE HYDROCHLORIDE
     Indication: PRODUCT USED FOR UNKNOWN INDICATION
     Dosage: 5 MG
     Route: 048
  9. ILARIS [Suspect]
     Active Substance: CANAKINUMAB
     Indication: FAMILIAL MEDITERRANEAN FEVER
     Dosage: 150 MG
     Route: 058
     Dates: start: 20190624
  10. CALONAL [Concomitant]
     Active Substance: ACETAMINOPHEN
     Indication: PRODUCT USED FOR UNKNOWN INDICATION
     Dosage: 300 MG
     Route: 048
  11. ILARIS [Suspect]
     Active Substance: CANAKINUMAB
     Dosage: 300 MG
     Route: 058
     Dates: start: 20191114
  12. COLCHICINE. [Concomitant]
     Active Substance: COLCHICINE
     Indication: PRODUCT USED FOR UNKNOWN INDICATION
     Dosage: 0.5 MG
     Route: 065
     Dates: start: 20161202, end: 20161227
  13. ILARIS [Suspect]
     Active Substance: CANAKINUMAB
     Dosage: 300 MG
     Route: 058
     Dates: start: 20191018
  14. ILARIS [Suspect]
     Active Substance: CANAKINUMAB
     Dosage: 150 MG
     Route: 058
     Dates: start: 20190819
  15. COLCHICINE. [Concomitant]
     Active Substance: COLCHICINE
     Dosage: 1.5 MG
     Route: 065
     Dates: start: 20161228, end: 20170126

REACTIONS (10)
  - Blood glucose increased [Unknown]
  - Pyrexia [Unknown]
  - Diabetes mellitus [Unknown]
  - Liver function test increased [Unknown]
  - Concomitant disease aggravated [Unknown]
  - Injection site pain [Unknown]
  - Hepatic function abnormal [Not Recovered/Not Resolved]
  - Hepatic steatosis [Unknown]
  - Blood pressure decreased [Unknown]
  - Weight increased [Unknown]

NARRATIVE: CASE EVENT DATE: 20190722
